FAERS Safety Report 7433930-7 (Version None)
Quarter: 2011Q2

REPORT INFORMATION
  Report Type: 
  Country: None (occurrence: None)
  Receive Date: 20110418
  Receipt Date: 20110401
  Transmission Date: 20111010
  Serious: Yes (Life-Threatening, Hospitalization)
  Sender: FDA-Public Use
  Company Number: 1000019955

PATIENT
  Age: 68 Year
  Sex: Male

DRUGS (7)
  1. ESCITALOPRAM [Suspect]
     Dosage: 10 MG (10 MG, 1 IN 1 D), ORAL
     Route: 048
  2. PREVISCAN (FLUINDIONE) (TABLETS) [Suspect]
     Indication: CARDIAC VALVE PROSTHESIS USER
     Dosage: 30 MG (30 MG, 1 IN 1 D), ORAL
     Route: 048
     Dates: end: 20110215
  3. LASILIX (FUROSEMIDE) (TABLETS) (FUROSEMIDE) [Concomitant]
  4. OMEPRAZOLE [Concomitant]
  5. ASPIRIN [Suspect]
     Dosage: 160 MG (160 MG, 1 IN 1 D), ORAL
     Route: 048
  6. URBANYL (CLOBAZAM) (CAPSULES) (CLOBAZAM) [Concomitant]
  7. KEPPRA (LEVETIRACETAM) (TABLETS) (LEVETIRACETAM) [Concomitant]

REACTIONS (5)
  - ANAEMIA [None]
  - INTERNATIONAL NORMALISED RATIO INCREASED [None]
  - HAEMORRHAGE [None]
  - EXTRADURAL HAEMATOMA [None]
  - OVERDOSE [None]
